FAERS Safety Report 10204083 (Version 2)
Quarter: 2014Q2

REPORT INFORMATION
  Report Type: Spontaneous
  Country: DE (occurrence: None)
  Receive Date: 20140523
  Receipt Date: 20140620
  Transmission Date: 20141212
  Serious: Yes (Congenital Anomaly, Other)
  Sender: FDA-Public Use
  Company Number: AUR-APL-2014-05982

PATIENT
  Age: 1 Day
  Sex: Female
  Weight: 4.3 kg

DRUGS (1)
  1. PAROXETINE AUROBINDO FILMTABLETTEN 20MG (PAROXETINE) FILM-COATED TABLET, 20MG [Suspect]
     Indication: DEPRESSION
     Dosage: GW 20: 20 MG/D, TRANSPLACENTAL
     Route: 064
     Dates: start: 20130228, end: 20131124

REACTIONS (7)
  - Maternal drugs affecting foetus [None]
  - Neonatal respiratory distress syndrome [None]
  - Large for dates baby [None]
  - Atrial septal defect [None]
  - Restlessness [None]
  - Crying [None]
  - Drug withdrawal syndrome neonatal [None]
